FAERS Safety Report 24825235 (Version 1)
Quarter: 2025Q1

REPORT INFORMATION
  Report Type: Spontaneous
  Country: US (occurrence: None)
  Receive Date: 20250109
  Receipt Date: 20250109
  Transmission Date: 20250409
  Serious: Yes (Other)
  Sender: FDA-CTU
  Company Number: None

PATIENT
  Age: 41 Year
  Sex: Female
  Weight: 65.25 kg

DRUGS (7)
  1. RINVOQ [Suspect]
     Active Substance: UPADACITINIB
     Indication: Ankylosing spondylitis
     Dosage: 30 TABLET (S) AT BEDTIME ORAL
     Route: 048
     Dates: start: 20240708, end: 20241119
  2. FLEXERIL [Concomitant]
     Active Substance: CYCLOBENZAPRINE HYDROCHLORIDE
  3. BACLOFEN [Concomitant]
     Active Substance: BACLOFEN
  4. TORADOL [Concomitant]
     Active Substance: KETOROLAC TROMETHAMINE
  5. MOTRIN [Concomitant]
     Active Substance: IBUPROFEN
  6. TYLENOL [Concomitant]
     Active Substance: ACETAMINOPHEN
  7. ALEVE [Concomitant]
     Active Substance: NAPROXEN SODIUM

REACTIONS (14)
  - Alopecia [None]
  - Abdominal pain upper [None]
  - Weight increased [None]
  - Chest pain [None]
  - Renal pain [None]
  - Constipation [None]
  - Cyst [None]
  - Oral herpes [None]
  - Staphylococcal infection [None]
  - Migraine [None]
  - Blood pressure increased [None]
  - Blood cholesterol increased [None]
  - Hot flush [None]
  - Feeling cold [None]

NARRATIVE: CASE EVENT DATE: 20240924
